FAERS Safety Report 7454955-1 (Version None)
Quarter: 2011Q2

REPORT INFORMATION
  Report Type: 
  Country: None (occurrence: None)
  Receive Date: 20110503
  Receipt Date: 20110429
  Transmission Date: 20111010
  Serious: Yes (Other)
  Sender: FDA-Public Use
  Company Number: NO-BRISTOL-MYERS SQUIBB COMPANY-14999544

PATIENT
  Age: 23 Year
  Sex: Female

DRUGS (4)
  1. CALCIGRAN [Suspect]
  2. KENACORT-T INJ 40 MG/ML [Suspect]
     Indication: RHINITIS ALLERGIC
     Dates: start: 20090402
  3. DEPO-PROVERA [Suspect]
     Dosage: 1 DF=150MG/ML (1ML)
     Dates: start: 20090511
  4. KENACORT-T INJ 40 MG/ML [Suspect]
     Indication: SEASONAL ALLERGY
     Dates: start: 20090402

REACTIONS (3)
  - DEPRESSED MOOD [None]
  - INJECTION SITE PAIN [None]
  - INJECTION SITE ATROPHY [None]
